FAERS Safety Report 18916707 (Version 1)
Quarter: 2021Q1

REPORT INFORMATION
  Report Type: Report from Study
  Country: IT (occurrence: IT)
  Receive Date: 20210219
  Receipt Date: 20210219
  Transmission Date: 20210420
  Serious: Yes (Hospitalization)
  Sender: FDA-Public Use
  Company Number: IT-PFIZER INC-2021127600

PATIENT
  Age: 21 Year
  Sex: Female

DRUGS (4)
  1. DEPAKIN [Concomitant]
     Active Substance: VALPROATE SODIUM
  2. ARIPIPRAZOLO TEVA [Concomitant]
     Active Substance: ARIPIPRAZOLE
  3. LORAZEPAM. [Suspect]
     Active Substance: LORAZEPAM
     Dosage: 60 DF
     Dates: start: 20201221, end: 20201221
  4. CARBOLITHIUM [Concomitant]
     Active Substance: LITHIUM CARBONATE

REACTIONS (2)
  - Intentional overdose [Unknown]
  - Suspected suicide attempt [Unknown]

NARRATIVE: CASE EVENT DATE: 20201221
